FAERS Safety Report 7339722-1 (Version None)
Quarter: 2011Q1

REPORT INFORMATION
  Report Type: 
  Country: None (occurrence: None)
  Receive Date: 20110309
  Receipt Date: 20110224
  Transmission Date: 20110831
  Serious: Yes (Hospitalization, Other)
  Sender: FDA-Public Use
  Company Number: GR-ELI_LILLY_AND_COMPANY-GR201102007056

PATIENT
  Age: 75 Year
  Sex: Female

DRUGS (11)
  1. DIURETICS [Concomitant]
     Dosage: UNK, UNKNOWN
     Route: 065
  2. PREZOLON [Concomitant]
     Dosage: 10 MG, DAILY (1/D)
     Route: 065
  3. GLUCOPHAGE [Concomitant]
     Dosage: UNK, UNKNOWN
     Route: 065
  4. ONE ALPHA [Concomitant]
     Indication: MINERAL SUPPLEMENTATION
     Dosage: UNK, UNKNOWN
     Route: 065
  5. LASIX [Concomitant]
     Dosage: UNK, UNKNOWN
     Route: 065
  6. CALCIORAL [Concomitant]
     Indication: MINERAL SUPPLEMENTATION
     Dosage: UNK, UNKNOWN
     Route: 065
  7. SALOSPIR [Concomitant]
     Dosage: 100 MG, DAILY (1/D)
     Route: 048
  8. DILATREND [Concomitant]
     Dosage: 6.25 MG, UNKNOWN
     Route: 065
  9. THEO-DUR [Concomitant]
     Dosage: UNK, UNKNOWN
     Route: 065
  10. FORTEO [Suspect]
     Indication: OSTEOPOROSIS
     Dosage: 20 UG, DAILY (1/D)
     Route: 058
     Dates: start: 20110101, end: 20110101
  11. ANTIHYPERTENSIVES [Concomitant]
     Dosage: UNK, UNKNOWN
     Route: 065

REACTIONS (2)
  - PULMONARY OEDEMA [None]
  - HYPERCALCAEMIA [None]
